FAERS Safety Report 15783779 (Version 1)
Quarter: 2019Q1

REPORT INFORMATION
  Report Type: Spontaneous
  Country: US (occurrence: US)
  Receive Date: 20190102
  Receipt Date: 20190102
  Transmission Date: 20190417
  Serious: Yes (Other)
  Sender: FDA-Public Use
  Company Number: US-009507513-1812USA012569

PATIENT
  Age: 61 Year
  Sex: Female

DRUGS (1)
  1. ZOCOR [Suspect]
     Active Substance: SIMVASTATIN
     Dosage: 40 MILLIGRAM

REACTIONS (2)
  - Rhabdomyolysis [Recovered/Resolved]
  - Pain [Recovered/Resolved]
